FAERS Safety Report 7295974-8 (Version None)
Quarter: 2011Q1

REPORT INFORMATION
  Report Type: 
  Country: None (occurrence: None)
  Receive Date: 20110211
  Receipt Date: 20110211
  Transmission Date: 20110831
  Serious: Yes (Hospitalization)
  Sender: FDA-Public Use
  Company Number: None

PATIENT
  Age: 72 Year
  Sex: Male
  Weight: 87.9 kg

DRUGS (10)
  1. ALEVE [Concomitant]
  2. LEVAQUIN [Concomitant]
  3. TERAZOSYN [Concomitant]
  4. MECLIZINE [Concomitant]
  5. LYRICA [Concomitant]
  6. DECITABINE [Suspect]
     Indication: MYELODYSPLASTIC SYNDROME
     Dosage: .2MG/KG SQ
     Dates: start: 20101117
  7. OMEPRAZOLE [Concomitant]
  8. EXJADE [Concomitant]
  9. VICODIN [Concomitant]
  10. REQUIP [Concomitant]

REACTIONS (2)
  - BACTERIAL INFECTION [None]
  - FEBRILE NEUTROPENIA [None]
